FAERS Safety Report 5399642-9 (Version None)
Quarter: 2007Q3

REPORT INFORMATION
  Report Type: 
  Country: None (occurrence: None)
  Receive Date: 20070727
  Receipt Date: 20070717
  Transmission Date: 20080115
  Serious: Yes (Life-Threatening, Hospitalization, Disabling, Other)
  Sender: FDA-Public Use
  Company Number: IE-PFIZER INC-2007049789

PATIENT
  Age: 22 Year
  Sex: Female

DRUGS (1)
  1. LYRICA [Suspect]
     Indication: BACK PAIN

REACTIONS (13)
  - BRADYPHRENIA [None]
  - CONFUSIONAL STATE [None]
  - DISORIENTATION [None]
  - EUPHORIC MOOD [None]
  - FEELING ABNORMAL [None]
  - FLUSHING [None]
  - HYPOAESTHESIA [None]
  - MALAISE [None]
  - PARAESTHESIA [None]
  - SENSATION OF HEAVINESS [None]
  - SOMNOLENCE [None]
  - TEARFULNESS [None]
  - VISUAL DISTURBANCE [None]
